FAERS Safety Report 10017016 (Version 2)
Quarter: 2014Q2

REPORT INFORMATION
  Report Type: Spontaneous
  Country: US (occurrence: US)
  Receive Date: 20140318
  Receipt Date: 20140403
  Transmission Date: 20141212
  Serious: No
  Sender: FDA-Public Use
  Company Number: US-BIOGENIDEC-2014BI021569

PATIENT
  Age: 60 Year
  Sex: Female

DRUGS (3)
  1. AVONEX [Suspect]
     Indication: MULTIPLE SCLEROSIS
     Route: 030
     Dates: start: 19990601
  2. AVONEX [Suspect]
     Indication: MULTIPLE SCLEROSIS
     Route: 030
     Dates: start: 201001
  3. AVONEX [Suspect]
     Indication: MULTIPLE SCLEROSIS
     Route: 030
     Dates: start: 201001

REACTIONS (11)
  - Injection site haemorrhage [Recovered/Resolved]
  - Injection site swelling [Unknown]
  - Injection site discomfort [Unknown]
  - Injection site pain [Recovered/Resolved]
  - Swelling [Not Recovered/Not Resolved]
  - Erythema [Not Recovered/Not Resolved]
  - Skin swelling [Recovered/Resolved]
  - Peripheral swelling [Recovered/Resolved]
  - Injection site haematoma [Recovered/Resolved]
  - Injection site bruising [Unknown]
  - Anxiety [Not Recovered/Not Resolved]
